FAERS Safety Report 7478307-3 (Version None)
Quarter: 2011Q2

REPORT INFORMATION
  Report Type: 
  Country: None (occurrence: None)
  Receive Date: 20110513
  Receipt Date: 20091216
  Transmission Date: 20111010
  Serious: No
  Sender: FDA-Public Use
  Company Number: US-PFIZER INC-2010041728

PATIENT
  Age: 54 Year
  Sex: Female

DRUGS (5)
  1. CHONDROITIN/GLUCOSAMINE [Concomitant]
     Indication: ARTHROPATHY
     Dosage: TABLET 3 TIMES WEEKLY
     Route: 048
  2. BENADRYL [Suspect]
     Route: 048
  3. HYDROXYZINE HCL [Suspect]
     Indication: HYPERSENSITIVITY
     Dosage: UNK MG, 1X/DAY
     Route: 048
  4. ZYRTEC [Suspect]
     Indication: HYPERSENSITIVITY
     Dosage: 10 MG, 1X/DAY
     Route: 048
  5. IBUPROFEN [Concomitant]
     Indication: HYPERSENSITIVITY
     Dosage: 1 TABLET
     Route: 048

REACTIONS (3)
  - PRURITUS [None]
  - SKIN REACTION [None]
  - ERYTHEMA [None]
